FAERS Safety Report 5962707-4 (Version None)
Quarter: 2008Q4

REPORT INFORMATION
  Report Type: 
  Country: None (occurrence: None)
  Receive Date: 20081124
  Receipt Date: 20081119
  Transmission Date: 20090506
  Serious: Yes (Other)
  Sender: FDA-Public Use
  Company Number: JP-JNJFOC-20081103142

PATIENT
  Age: 76 Year
  Sex: Male

DRUGS (2)
  1. ITIRZOLE [Suspect]
     Indication: ONYCHOMYCOSIS
     Route: 048
  2. HUMALOG [Concomitant]
     Route: 058

REACTIONS (4)
  - FACE OEDEMA [None]
  - OEDEMA PERIPHERAL [None]
  - PLEURAL EFFUSION [None]
  - WEIGHT INCREASED [None]
